FAERS Safety Report 4550789-6 (Version None)
Quarter: 2004Q4

REPORT INFORMATION
  Report Type: 
  Country: None (occurrence: None)
  Receive Date: 20041217
  Receipt Date: 20040930
  Transmission Date: 20050328
  Serious: No
  Sender: FDA-Public Use
  Company Number: 2004-BP-09085BP(0)

PATIENT
  Sex: Female

DRUGS (4)
  1. SPIRIVA [Suspect]
     Indication: CHRONIC OBSTRUCTIVE AIRWAYS DISEASE
     Dosage: 18 MCG (18 MCG), IH
     Route: 025
     Dates: start: 20040601
  2. VERAPAMIL [Concomitant]
  3. COUMADIN [Concomitant]
  4. COENZYME Q10 [Concomitant]

REACTIONS (5)
  - BONE PAIN [None]
  - CONSTIPATION [None]
  - DIPLOPIA [None]
  - DRY MOUTH [None]
  - MYALGIA [None]
